FAERS Safety Report 12402059 (Version 2)
Quarter: 2016Q2

REPORT INFORMATION
  Report Type: Spontaneous
  Country: US (occurrence: US)
  Receive Date: 20160525
  Receipt Date: 20160527
  Transmission Date: 20160815
  Serious: Yes (Other)
  Sender: FDA-Public Use
  Company Number: US-SA-2015SA222679

PATIENT
  Age: 54 Year
  Sex: Female

DRUGS (3)
  1. LANTUS [Suspect]
     Active Substance: INSULIN GLARGINE
     Indication: TYPE 1 DIABETES MELLITUS
     Dosage: 5 1/2 TO 6 UNITS
     Route: 065
     Dates: start: 201512
  2. LANTUS [Suspect]
     Active Substance: INSULIN GLARGINE
     Indication: TYPE 1 DIABETES MELLITUS
     Dosage: 5 1/2 TO 6 UNITS
     Route: 065
     Dates: start: 20151201, end: 20151225
  3. GLUCAGON. [Concomitant]
     Active Substance: GLUCAGON

REACTIONS (8)
  - Joint injury [Not Recovered/Not Resolved]
  - Hypoglycaemic unconsciousness [Recovered/Resolved]
  - Contusion [Not Recovered/Not Resolved]
  - Fall [Unknown]
  - Head injury [Recovered/Resolved]
  - Limb injury [Recovered/Resolved]
  - Hypoglycaemia [Recovered/Resolved]
  - Drug administration error [Unknown]

NARRATIVE: CASE EVENT DATE: 20151201
